FAERS Safety Report 7026914-4 (Version None)
Quarter: 2010Q4

REPORT INFORMATION
  Report Type: 
  Country: None (occurrence: None)
  Receive Date: 20101004
  Receipt Date: 20100929
  Transmission Date: 20110411
  Serious: Yes (Death, Hospitalization)
  Sender: FDA-Public Use
  Company Number: A0884487A

PATIENT
  Age: 12 Year
  Sex: Female
  Weight: 30 kg

DRUGS (3)
  1. LAMICTAL [Suspect]
     Indication: EPILEPSY
     Dosage: 150MGD PER DAY
     Route: 048
     Dates: start: 20100901, end: 20100901
  2. CLOBAZAM [Concomitant]
     Dosage: 5MGKD PER DAY
  3. VIGABATRIN [Concomitant]
     Dosage: 100MGKD PER DAY

REACTIONS (16)
  - APHAGIA [None]
  - CARDIAC ARREST [None]
  - CYANOSIS [None]
  - DEHYDRATION [None]
  - DYSPNOEA [None]
  - INFECTION [None]
  - MACROGLOSSIA [None]
  - MULTI-ORGAN FAILURE [None]
  - ORAL DISORDER [None]
  - PLEURAL EFFUSION [None]
  - PROCEDURAL COMPLICATION [None]
  - PRODUCT QUALITY ISSUE [None]
  - RASH [None]
  - SEPSIS [None]
  - SKIN EXFOLIATION [None]
  - STEVENS-JOHNSON SYNDROME [None]
